FAERS Safety Report 14629747 (Version 3)
Quarter: 2019Q1

REPORT INFORMATION
  Report Type: Spontaneous
  Country: US (occurrence: US)
  Receive Date: 20180313
  Receipt Date: 20190225
  Transmission Date: 20190417
  Serious: Yes (Hospitalization, Other)
  Sender: FDA-Public Use
  Company Number: US-ASTRAZENECA-2018SE29125

PATIENT
  Age: 22182 Day
  Sex: Female
  Weight: 74.4 kg

DRUGS (43)
  1. VENLAFAXINE [Concomitant]
     Active Substance: VENLAFAXINE HYDROCHLORIDE
  2. TOPIRAMATE. [Concomitant]
     Active Substance: TOPIRAMATE
  3. HYDROCODONE BITARTRATE AND ACETAMINOPHEN [Concomitant]
     Active Substance: ACETAMINOPHEN\HYDROCODONE BITARTRATE
     Indication: PAIN
     Dates: start: 2012
  4. TRAMADOL. [Concomitant]
     Active Substance: TRAMADOL
  5. PROMETHAZINE [Concomitant]
     Active Substance: PROMETHAZINE\PROMETHAZINE HYDROCHLORIDE
     Indication: ANTIALLERGIC THERAPY
     Dates: start: 2010
  6. RAMIPRIL. [Concomitant]
     Active Substance: RAMIPRIL
     Indication: BLOOD PRESSURE MEASUREMENT
     Dates: start: 2010, end: 2016
  7. CYMBALTA [Concomitant]
     Active Substance: DULOXETINE HYDROCHLORIDE
     Indication: ANXIETY
     Dates: start: 2012, end: 2013
  8. AMLODIPINE [Concomitant]
     Active Substance: AMLODIPINE BESYLATE
     Dates: start: 2010, end: 2016
  9. PRILOSEC [Suspect]
     Active Substance: OMEPRAZOLE MAGNESIUM
     Indication: GASTROOESOPHAGEAL REFLUX DISEASE
     Route: 048
  10. GABAPENTIN. [Concomitant]
     Active Substance: GABAPENTIN
  11. ALBUTEROL. [Concomitant]
     Active Substance: ALBUTEROL
  12. ABILIFY [Concomitant]
     Active Substance: ARIPIPRAZOLE
  13. LEVOTHYROXINE. [Concomitant]
     Active Substance: LEVOTHYROXINE
  14. TIZANIDINE. [Concomitant]
     Active Substance: TIZANIDINE
     Indication: MUSCLE SPASMS
     Dates: start: 2010
  15. TOPIRAMATE. [Concomitant]
     Active Substance: TOPIRAMATE
  16. PROAIR HFA [Concomitant]
     Active Substance: ALBUTEROL SULFATE
  17. CARISOPRODOL. [Concomitant]
     Active Substance: CARISOPRODOL
  18. KLOR-CON [Concomitant]
     Active Substance: POTASSIUM CHLORIDE
  19. ESCITALOPRAM [Concomitant]
     Active Substance: ESCITALOPRAM OXALATE
  20. OXYCODONE AND ACETAMINOPHEN [Concomitant]
     Active Substance: ACETAMINOPHEN\OXYCODONE HYDROCHLORIDE
     Dates: start: 2012
  21. RAMIPRIL. [Concomitant]
     Active Substance: RAMIPRIL
  22. LEVOTHYROXINE. [Concomitant]
     Active Substance: LEVOTHYROXINE
     Indication: THYROID DISORDER
  23. SINGULAIR [Concomitant]
     Active Substance: MONTELUKAST SODIUM
  24. TRICOR [Concomitant]
     Active Substance: FENOFIBRATE
     Indication: BLOOD CHOLESTEROL DECREASED
     Dates: start: 2012
  25. CARISOPRODOL. [Concomitant]
     Active Substance: CARISOPRODOL
  26. CLONAZEPAM. [Concomitant]
     Active Substance: CLONAZEPAM
  27. ESCITALOPRAM [Concomitant]
     Active Substance: ESCITALOPRAM OXALATE
  28. SULFAMETHOXAZOLE [Concomitant]
     Active Substance: SULFAMETHOXAZOLE
  29. VENLAFAXINE [Concomitant]
     Active Substance: VENLAFAXINE HYDROCHLORIDE
  30. WARFARIN [Concomitant]
     Active Substance: WARFARIN
     Dates: start: 2010, end: 2016
  31. NEXIUM [Suspect]
     Active Substance: ESOMEPRAZOLE MAGNESIUM
     Route: 048
     Dates: start: 20120504
  32. CLONAZEPAM. [Concomitant]
     Active Substance: CLONAZEPAM
     Indication: ANXIETY
     Dates: start: 2010, end: 2012
  33. FUROSEMIDE. [Concomitant]
     Active Substance: FUROSEMIDE
     Indication: FLUID RETENTION
     Dates: start: 2012
  34. CARISOPRODOL. [Concomitant]
     Active Substance: CARISOPRODOL
     Indication: MUSCLE RELAXANT THERAPY
     Dates: start: 2010
  35. TOPIRAMATE. [Concomitant]
     Active Substance: TOPIRAMATE
     Dates: start: 2012, end: 2016
  36. NEXIUM [Suspect]
     Active Substance: ESOMEPRAZOLE MAGNESIUM
     Route: 048
     Dates: start: 2010, end: 2016
  37. OXYCODONE [Concomitant]
     Active Substance: OXYCODONE
  38. NITROSTAT [Concomitant]
     Active Substance: NITROGLYCERIN
  39. TORSEMIDE. [Concomitant]
     Active Substance: TORSEMIDE
  40. MONTELUKAST [Concomitant]
     Active Substance: MONTELUKAST SODIUM
  41. GLIPIZIDE. [Concomitant]
     Active Substance: GLIPIZIDE
  42. ISOSORBIDE. [Concomitant]
     Active Substance: ISOSORBIDE
  43. SUMATRIPTAN. [Concomitant]
     Active Substance: SUMATRIPTAN
     Indication: MIGRAINE
     Dates: start: 2010

REACTIONS (3)
  - Acute kidney injury [Not Recovered/Not Resolved]
  - Renal failure [Unknown]
  - Chronic kidney disease [Not Recovered/Not Resolved]

NARRATIVE: CASE EVENT DATE: 20130222
